FAERS Safety Report 4693226-3 (Version None)
Quarter: 2005Q2

REPORT INFORMATION
  Report Type: 
  Country: None (occurrence: None)
  Receive Date: 20050617
  Receipt Date: 20050609
  Transmission Date: 20051028
  Serious: Yes (Hospitalization)
  Sender: FDA-Public Use
  Company Number: 200515174GDDC

PATIENT
  Age: 64 Year
  Sex: Female

DRUGS (4)
  1. NICORETTE [Suspect]
     Route: 002
     Dates: start: 20020101
  2. WARFARIN SODIUM [Concomitant]
     Dates: start: 20020101
  3. ANTIHYPERTENSIVES [Concomitant]
     Dates: start: 20020101
  4. UNSPECIFIED MEDICATIONS [Concomitant]
     Dates: start: 20020101

REACTIONS (2)
  - DEMENTIA [None]
  - VERTIGO [None]
